FAERS Safety Report 9206187 (Version 1)
Quarter: 2013Q2

REPORT INFORMATION
  Report Type: Spontaneous
  Country: US (occurrence: US)
  Receive Date: 20130403
  Receipt Date: 20130403
  Transmission Date: 20140414
  Serious: Yes (Hospitalization, Other)
  Sender: FDA-Public Use
  Company Number: US-PFIZER INC-2013102423

PATIENT
  Sex: Male

DRUGS (3)
  1. GEODON [Suspect]
     Indication: ANGER
     Dosage: UNK
     Dates: start: 2012
  2. GEODON [Suspect]
     Indication: ABNORMAL BEHAVIOUR
  3. GEODON [Suspect]
     Indication: SUICIDAL IDEATION

REACTIONS (2)
  - Convulsion [Unknown]
  - Off label use [Unknown]
